FAERS Safety Report 9337676 (Version 1)
Quarter: 2013Q2

REPORT INFORMATION
  Report Type: Spontaneous
  Country: DE (occurrence: DE)
  Receive Date: 20130607
  Receipt Date: 20130607
  Transmission Date: 20140414
  Serious: Yes (Hospitalization)
  Sender: FDA-Public Use
  Company Number: DE-ASTRAZENECA-2013SE38077

PATIENT
  Age: 76 Year
  Sex: Male

DRUGS (4)
  1. BRILIQUE [Suspect]
     Indication: CORONARY ARTERY DISEASE
     Dosage: 90
     Route: 048
     Dates: start: 201303, end: 20130313
  2. SIMVASTATIN [Interacting]
     Indication: CORONARY ARTERY DISEASE
     Dosage: 40
     Route: 048
     Dates: end: 20130313
  3. ASS 100 [Concomitant]
     Indication: CORONARY ARTERY DISEASE
     Dosage: 100
     Route: 048
  4. BISOPROLOL [Concomitant]
     Indication: CORONARY ARTERY DISEASE
     Dosage: 5
     Route: 048

REACTIONS (2)
  - Drug interaction [Unknown]
  - Rhabdomyolysis [Recovering/Resolving]
